FAERS Safety Report 6726102-2 (Version None)
Quarter: 2010Q2

REPORT INFORMATION
  Report Type: 
  Country: None (occurrence: None)
  Receive Date: 20100514
  Receipt Date: 20100507
  Transmission Date: 20101027
  Serious: Yes (Disabling)
  Sender: FDA-Public Use
  Company Number: GB-PFIZER INC-2010030304

PATIENT
  Age: 68 Year
  Sex: Female
  Weight: 58 kg

DRUGS (7)
  1. LIPITOR [Suspect]
     Indication: BLOOD CHOLESTEROL INCREASED
     Dosage: 20 MG, 1X/DAY
     Route: 048
     Dates: start: 20060801, end: 20100317
  2. FLECAINIDE [Concomitant]
     Indication: ATRIAL FIBRILLATION
     Dosage: 50 MG, 2X/DAY
  3. LISINOPRIL [Concomitant]
     Indication: BLOOD PRESSURE INCREASED
     Dosage: 10 MG, 1X/DAY
  4. SUMATRIPTAN [Concomitant]
     Indication: MIGRAINE
     Dosage: UNK
  5. WARFARIN [Concomitant]
     Indication: AORTIC VALVE DISEASE
     Dosage: UNK
  6. RANITIDINE [Concomitant]
     Indication: GASTROOESOPHAGEAL REFLUX DISEASE
     Dosage: 150 MG, 2X/DAY
  7. MEBEVERINE [Concomitant]
     Indication: IRRITABLE BOWEL SYNDROME
     Dosage: 200 MG, 2X/DAY

REACTIONS (3)
  - AMNESIA [None]
  - COGNITIVE DISORDER [None]
  - DEPRESSION [None]
